FAERS Safety Report 8521093-6 (Version None)
Quarter: 2012Q3

REPORT INFORMATION
  Report Type: 
  Country: None (occurrence: None)
  Receive Date: 20120719
  Receipt Date: 20120711
  Transmission Date: 20120928
  Serious: Yes (Other)
  Sender: FDA-Public Use
  Company Number: GB-JNJFOC-20120705846

PATIENT
  Age: 4 Year
  Sex: Male
  Weight: 26.04 kg

DRUGS (3)
  1. CETIRIZINE HYDROCHLORIDE [Suspect]
     Route: 048
  2. MELATONIN [Suspect]
     Indication: POOR QUALITY SLEEP
     Route: 048
     Dates: start: 20120201
  3. CETIRIZINE HYDROCHLORIDE [Suspect]
     Indication: SEASONAL ALLERGY
     Route: 048

REACTIONS (2)
  - SOMNOLENCE [None]
  - WRONG DRUG ADMINISTERED [None]
